FAERS Safety Report 12272973 (Version 1)
Quarter: 2016Q2

REPORT INFORMATION
  Report Type: Spontaneous
  Country: US (occurrence: US)
  Receive Date: 20160415
  Receipt Date: 20160415
  Transmission Date: 20160815
  Serious: Yes (Other)
  Sender: FDA-Public Use
  Company Number: US-ROCHE-1053785

PATIENT
  Sex: Female
  Weight: 96.7 kg

DRUGS (5)
  1. INCIVEK [Suspect]
     Active Substance: TELAPREVIR
     Indication: HEPATITIS C
     Route: 048
     Dates: start: 201111, end: 201202
  2. PHENERGAN [Concomitant]
     Active Substance: PROMETHAZINE HYDROCHLORIDE
     Route: 048
  3. PEGASYS [Suspect]
     Active Substance: PEGINTERFERON ALFA-2A
     Indication: HEPATITIS C
     Dosage: REINTRODUCED
     Route: 048
  4. ZOFRAN [Concomitant]
     Active Substance: ONDANSETRON HYDROCHLORIDE
     Route: 048
  5. RIBAVIRIN. [Suspect]
     Active Substance: RIBAVIRIN
     Indication: HEPATITIS C
     Route: 065
     Dates: start: 201111, end: 201202

REACTIONS (7)
  - Vomiting [Recovered/Resolved]
  - Fatigue [Unknown]
  - Malaise [Unknown]
  - Retching [Unknown]
  - Dehydration [Unknown]
  - Haemolytic anaemia [Not Recovered/Not Resolved]
  - Nausea [Not Recovered/Not Resolved]
